FAERS Safety Report 8082143-7 (Version None)
Quarter: 2012Q1

REPORT INFORMATION
  Report Type: 
  Country: None (occurrence: None)
  Receive Date: 20120127
  Receipt Date: 20110121
  Transmission Date: 20120608
  Serious: No
  Sender: FDA-Public Use
  Company Number: US-ABBOTT-11P-163-0699852-00

PATIENT
  Age: 62 Year
  Sex: Female

DRUGS (25)
  1. GABAPENTIN [Concomitant]
     Indication: PAIN IN EXTREMITY
     Dosage: PILLS
  2. PREDNISONE TAB [Concomitant]
     Indication: RHEUMATOID ARTHRITIS
  3. TRIAMOLONE ANTIBIOTIC SAUVE [Concomitant]
     Indication: SKIN LESION
  4. TRIAMOLONE ANTIBIOTIC SAUVE [Concomitant]
     Indication: OEDEMA PERIPHERAL
  5. CYMBALTA [Concomitant]
     Indication: DEPRESSION
  6. RANITIDINE HCL [Concomitant]
     Indication: PROPHYLAXIS
  7. LIPITOR [Concomitant]
     Indication: BLOOD CHOLESTEROL INCREASED
  8. RHINOCORT [Concomitant]
     Indication: RHINITIS
     Dosage: 1 SPRAY EACH NOSTRIL
  9. HUMIRA [Suspect]
     Indication: RHEUMATOID ARTHRITIS
     Dates: start: 20090601
  10. FURASAMID [Concomitant]
     Indication: SWELLING
  11. METHOTREXATE [Concomitant]
     Indication: RHEUMATOID ARTHRITIS
  12. FLUOCINONIDE F [Concomitant]
     Indication: THERAPEUTIC SKIN CARE TOPICAL
  13. CYMBALTA [Concomitant]
     Indication: SWELLING
     Dosage: 60 DAILY
  14. POTASSIUM CHLORIDE [Concomitant]
     Indication: MUSCLE SPASMS
  15. PLAQUENIL [Concomitant]
     Indication: RHEUMATOID ARTHRITIS
     Dosage: TWO 299 MG TABLET
  16. XANAX [Concomitant]
     Indication: ANXIETY
  17. FLUOCINONIDE F [Concomitant]
  18. GABAPENTIN [Concomitant]
  19. FOLIC ACID [Concomitant]
     Indication: VITAMIN SUPPLEMENTATION
  20. RANITIDINE HCL [Concomitant]
     Indication: GASTROOESOPHAGEAL REFLUX DISEASE
  21. PREDNISONE TAB [Concomitant]
     Indication: OSTEOARTHRITIS
  22. NORCO [Concomitant]
     Indication: PAIN
     Dosage: 7.5/325 AS NEEDED AND TAKE 2-3 TIMES A DAY
  23. ZANAFLEX [Concomitant]
     Indication: MUSCLE SPASMS
  24. FLUOCINONIDE F [Concomitant]
     Indication: SKIN DISORDER
     Route: 061
  25. TRIAMOLONE ANTIBIOTIC SAUVE [Concomitant]

REACTIONS (1)
  - NASOPHARYNGITIS [None]
